FAERS Safety Report 10964328 (Version 2)
Quarter: 2015Q2

REPORT INFORMATION
  Report Type: Spontaneous
  Country: US (occurrence: US)
  Receive Date: 20150329
  Receipt Date: 20150524
  Transmission Date: 20150821
  Serious: No
  Sender: FDA-Public Use
  Company Number: US-JNJFOC-20131209546

PATIENT
  Sex: Male
  Weight: 86.18 kg

DRUGS (6)
  1. DURAGESIC [Suspect]
     Active Substance: FENTANYL
     Indication: NEURALGIA
     Route: 062
     Dates: start: 20020324
  2. DURAGESIC [Suspect]
     Active Substance: FENTANYL
     Indication: NEURALGIA
     Route: 062
  3. DURAGESIC [Suspect]
     Active Substance: FENTANYL
     Indication: NEURALGIA
     Route: 062
     Dates: start: 20131112
  4. DURAGESIC [Suspect]
     Active Substance: FENTANYL
     Indication: NEURALGIA
     Route: 062
  5. TRAZODONE [Concomitant]
     Active Substance: TRAZODONE HYDROCHLORIDE
     Indication: SLEEP DISORDER
     Route: 048
     Dates: start: 2009
  6. ULTRAM [Concomitant]
     Active Substance: TRAMADOL HYDROCHLORIDE
     Indication: PAIN
     Route: 065
     Dates: start: 20020324

REACTIONS (2)
  - Product quality issue [Unknown]
  - Breakthrough pain [Unknown]
